FAERS Safety Report 25162903 (Version 2)
Quarter: 2025Q2

REPORT INFORMATION
  Report Type: Report from Study
  Country: IT (occurrence: IT)
  Receive Date: 20250404
  Receipt Date: 20250416
  Transmission Date: 20250716
  Serious: Yes (Death, Other)
  Sender: TAKEDA
  Company Number: IT-TAKEDA-2025TUS033989

PATIENT
  Sex: Female

DRUGS (2)
  1. FRUQUINTINIB [Suspect]
     Active Substance: FRUQUINTINIB
     Indication: Colorectal cancer metastatic
  2. FRUQUINTINIB [Suspect]
     Active Substance: FRUQUINTINIB
     Dosage: 4 MILLIGRAM, QD

REACTIONS (3)
  - Colorectal cancer metastatic [Fatal]
  - Haemorrhage [Unknown]
  - Hypertension [Unknown]

NARRATIVE: CASE EVENT DATE: 20250216
